FAERS Safety Report 23408258 (Version 1)
Quarter: 2024Q1

REPORT INFORMATION
  Report Type: Spontaneous
  Country: US (occurrence: US)
  Receive Date: 20240117
  Receipt Date: 20240117
  Transmission Date: 20240409
  Serious: No
  Sender: FDA-Public Use
  Company Number: US-BAUSCHBL-2024BNL000429

PATIENT
  Age: 71 Year
  Sex: Female

DRUGS (2)
  1. XIIDRA [Suspect]
     Active Substance: LIFITEGRAST
     Indication: Dry eye
     Dosage: STARTED 2 WEEKS AGO
     Route: 047
     Dates: start: 202312
  2. THERATEARS [Concomitant]
     Active Substance: CARBOXYMETHYLCELLULOSE SODIUM
     Indication: Product used for unknown indication

REACTIONS (3)
  - Eye irritation [Recovering/Resolving]
  - Feeling abnormal [Recovering/Resolving]
  - Product after taste [Unknown]

NARRATIVE: CASE EVENT DATE: 20231201
